FAERS Safety Report 13629649 (Version 1)
Quarter: 2017Q2

REPORT INFORMATION
  Report Type: Spontaneous
  Country: US (occurrence: US)
  Receive Date: 20170531
  Receipt Date: 20170531
  Transmission Date: 20170830
  Serious: No
  Sender: FDA-Public Use
  Company Number: US-ASTELLAS-1228361

PATIENT
  Sex: Female

DRUGS (3)
  1. GINGER. [Concomitant]
     Active Substance: GINGER
  2. TARCEVA [Suspect]
     Active Substance: ERLOTINIB HYDROCHLORIDE
     Indication: LUNG NEOPLASM MALIGNANT
     Route: 065
  3. HIBISCUS [Concomitant]
     Indication: BLOOD PRESSURE MEASUREMENT

REACTIONS (3)
  - Nausea [Unknown]
  - Poor quality sleep [Not Recovered/Not Resolved]
  - Rash [Not Recovered/Not Resolved]
